FAERS Safety Report 14233200 (Version 1)
Quarter: 2017Q4

REPORT INFORMATION
  Report Type: Spontaneous
  Country: US (occurrence: None)
  Receive Date: 20171128
  Receipt Date: 20171128
  Transmission Date: 20180321
  Serious: No
  Sender: FDA-Public Use
  Company Number: None

PATIENT
  Age: 89 Year
  Sex: Female

DRUGS (1)
  1. ANASTROZOLE. [Suspect]
     Active Substance: ANASTROZOLE
     Indication: BASAL CELL CARCINOMA
     Route: 048
     Dates: start: 20171120

REACTIONS (1)
  - Basal cell carcinoma [None]

NARRATIVE: CASE EVENT DATE: 20171127
